FAERS Safety Report 9893698 (Version 1)
Quarter: 2014Q1

REPORT INFORMATION
  Report Type: Spontaneous
  Country: US (occurrence: US)
  Receive Date: 20140213
  Receipt Date: 20140213
  Transmission Date: 20141002
  Serious: Yes (Hospitalization, Other)
  Sender: FDA-Public Use
  Company Number: US-B.I. PHARMACEUTICALS,INC./RIDGEFIELD-2014-BI-05202BP

PATIENT
  Sex: Female
  Weight: 51 kg

DRUGS (1)
  1. COMBIVENT [Suspect]
     Indication: CHRONIC OBSTRUCTIVE PULMONARY DISEASE
     Route: 055
     Dates: start: 1997, end: 201305

REACTIONS (4)
  - Myocardial infarction [Recovered/Resolved]
  - Cataract [Recovered/Resolved]
  - Fall [Not Recovered/Not Resolved]
  - Increased tendency to bruise [Not Recovered/Not Resolved]
